FAERS Safety Report 24237204 (Version 1)
Quarter: 2024Q3

REPORT INFORMATION
  Report Type: Spontaneous
  Country: US (occurrence: US)
  Receive Date: 20240822
  Receipt Date: 20240822
  Transmission Date: 20241017
  Serious: Yes (Life-Threatening, Hospitalization)
  Sender: SANDOZ
  Company Number: US-MLMSERVICE-20240617-PI098991-00232-1

PATIENT
  Age: 43 Year
  Sex: Female

DRUGS (3)
  1. MYCOPHENOLATE MOFETIL [Suspect]
     Active Substance: MYCOPHENOLATE MOFETIL
     Indication: Immunosuppressant drug therapy
     Dosage: UNK
     Route: 065
  2. PREDNISONE [Suspect]
     Active Substance: PREDNISONE
     Indication: Immunosuppressant drug therapy
     Dosage: UNK
     Route: 065
  3. TACROLIMUS [Suspect]
     Active Substance: TACROLIMUS
     Indication: Immunosuppressant drug therapy
     Dosage: UNK
     Route: 065

REACTIONS (9)
  - Pulmonary alveolar haemorrhage [Recovered/Resolved]
  - Respiratory failure [Recovered/Resolved]
  - Ejection fraction abnormal [Recovered/Resolved]
  - Diabetic ketoacidosis [Recovered/Resolved]
  - Hypotension [Recovered/Resolved]
  - Strongyloidiasis [Recovered/Resolved]
  - Pulmonary sepsis [Recovered/Resolved]
  - Pancreatitis acute [Recovered/Resolved]
  - Metabolic acidosis [Recovered/Resolved]
